FAERS Safety Report 8166390-1 (Version None)
Quarter: 2012Q1

REPORT INFORMATION
  Report Type: 
  Country: None (occurrence: None)
  Receive Date: 20120227
  Receipt Date: 20110802
  Transmission Date: 20120608
  Serious: No
  Sender: FDA-Public Use
  Company Number: US-MYLANLABS-2011S1014165

PATIENT
  Age: 32 Year
  Sex: Female
  Weight: 63.5 kg

DRUGS (6)
  1. AMNESTEEM [Suspect]
     Dates: start: 20110601, end: 20110707
  2. AMNESTEEM [Suspect]
     Dates: start: 20060101, end: 20060101
  3. AMNESTEEM [Suspect]
     Indication: ACNE
     Dates: start: 20110501, end: 20110601
  4. M.V.I. [Concomitant]
  5. CLARAVIS [Suspect]
     Indication: ACNE
     Dates: start: 20110406, end: 20110501
  6. ORTHO TRI-CYCLEN [Concomitant]

REACTIONS (2)
  - LIVER FUNCTION TEST ABNORMAL [None]
  - LYMPHOPENIA [None]
